FAERS Safety Report 4810023-6 (Version None)
Quarter: 2005Q4

REPORT INFORMATION
  Report Type: 
  Country: None (occurrence: None)
  Receive Date: 20051026
  Receipt Date: 20051014
  Transmission Date: 20060501
  Serious: Yes (Hospitalization)
  Sender: FDA-Public Use
  Company Number: FR-BRISTOL-MYERS SQUIBB COMPANY-13147251

PATIENT
  Age: 26 Year
  Sex: Female

DRUGS (3)
  1. BUSPAR [Suspect]
     Indication: MIGRAINE
     Route: 048
     Dates: start: 20050722
  2. VOLTAREN [Concomitant]
     Indication: MIGRAINE
     Route: 048
     Dates: start: 20050722
  3. RELPAX [Concomitant]
     Indication: MIGRAINE
     Route: 048
     Dates: start: 20050722

REACTIONS (5)
  - ABNORMAL BEHAVIOUR [None]
  - DELIRIUM [None]
  - DELUSION [None]
  - HALLUCINATION, VISUAL [None]
  - THINKING ABNORMAL [None]
